FAERS Safety Report 9081736 (Version 1)
Quarter: 2013Q1

REPORT INFORMATION
  Report Type: Report from Study
  Country: US (occurrence: US)
  Receive Date: 20130130
  Receipt Date: 20130130
  Transmission Date: 20140127
  Serious: No
  Sender: FDA-Public Use
  Company Number: US-ABBOTT-12P-163-0945831-00

PATIENT
  Age: 19 Year
  Sex: Female

DRUGS (5)
  1. HUMIRA 40 MG/0.8 ML PEN [Suspect]
     Indication: CROHN^S DISEASE
     Dates: start: 20120529
  2. HUMIRA 40 MG/0.8 ML PEN [Suspect]
     Dates: start: 20120612
  3. HUMIRA 40 MG/0.8 ML PEN [Suspect]
  4. ORTHO TRI CYCLEN [Concomitant]
     Indication: CONTRACEPTION
     Dosage: ONE TABLET BY MOUTH DAILY
  5. VITAMIN B12 [Concomitant]
     Indication: CROHN^S DISEASE
     Dosage: MONTHLY
     Route: 050

REACTIONS (4)
  - Injection site rash [Not Recovered/Not Resolved]
  - Injection site pruritus [Not Recovered/Not Resolved]
  - Injection site reaction [Not Recovered/Not Resolved]
  - Injection site reaction [Not Recovered/Not Resolved]
